FAERS Safety Report 5401251-X (Version None)
Quarter: 2007Q3

REPORT INFORMATION
  Report Type: 
  Country: None (occurrence: None)
  Receive Date: 20070731
  Receipt Date: 20070725
  Transmission Date: 20080115
  Serious: Yes (Death, Life-Threatening, Hospitalization)
  Sender: FDA-Public Use
  Company Number: FR-AVENTIS-200712420FR

PATIENT
  Age: 84 Year
  Sex: Male

DRUGS (4)
  1. OFLOCET                            /00731801/ [Suspect]
     Dates: start: 20070214
  2. FLAGYL [Suspect]
     Dates: start: 20070214
  3. PREVISCAN                          /00789001/ [Suspect]
     Indication: ARRHYTHMIA
     Route: 048
     Dates: end: 20070215
  4. EPO [Concomitant]

REACTIONS (5)
  - DRUG INTERACTION [None]
  - HAEMORRHAGIC ANAEMIA [None]
  - PROTHROMBIN TIME RATIO DECREASED [None]
  - RECTAL HAEMORRHAGE [None]
  - SHOCK HAEMORRHAGIC [None]
